FAERS Safety Report 7714965-3 (Version None)
Quarter: 2011Q3

REPORT INFORMATION
  Report Type: 
  Country: None (occurrence: None)
  Receive Date: 20110829
  Receipt Date: 20110627
  Transmission Date: 20111222
  Serious: No
  Sender: FDA-Public Use
  Company Number: US-ASTRAZENECA-2011SE38513

PATIENT
  Age: 62 Year
  Sex: Female
  Weight: 78.5 kg

DRUGS (2)
  1. VIMOVO [Suspect]
     Indication: ARTHRITIS
     Route: 048
     Dates: start: 20110601, end: 20110601
  2. VIMOVO [Suspect]
     Route: 048
     Dates: start: 20110601, end: 20110620

REACTIONS (1)
  - OESOPHAGEAL PAIN [None]
